FAERS Safety Report 25832586 (Version 1)
Quarter: 2025Q3

REPORT INFORMATION
  Report Type: Spontaneous
  Country: US (occurrence: None)
  Receive Date: 20250920
  Receipt Date: 20250920
  Transmission Date: 20251020
  Serious: Yes (Hospitalization)
  Sender: FDA-CTU
  Company Number: None

PATIENT
  Age: 49 Year
  Sex: Female
  Weight: 61.8 kg

DRUGS (1)
  1. TOPOTECAN [Suspect]
     Active Substance: TOPOTECAN HYDROCHLORIDE
     Dates: end: 20250915

REACTIONS (12)
  - Burning sensation [None]
  - Blood pressure decreased [None]
  - Pallor [None]
  - Dizziness [None]
  - Wheezing [None]
  - Hyperhidrosis [None]
  - Headache [None]
  - Fatigue [None]
  - Nausea [None]
  - Dyspnoea [None]
  - Anaphylactic reaction [None]
  - Tachycardia [None]

NARRATIVE: CASE EVENT DATE: 20250915
